FAERS Safety Report 18722795 (Version 3)
Quarter: 2021Q2

REPORT INFORMATION
  Report Type: Spontaneous
  Country: US (occurrence: US)
  Receive Date: 20210111
  Receipt Date: 20210407
  Transmission Date: 20210717
  Serious: Yes (Death, Other)
  Sender: FDA-Public Use
  Company Number: US-AMGEN-USASP2021001122

PATIENT

DRUGS (3)
  1. EPOETIN ALFA [Suspect]
     Active Substance: ERYTHROPOIETIN
     Indication: PROPHYLAXIS
     Dosage: 1000 INTERNATIONAL UNIT/KILOGRAM (EVERY 48 HOURS)
     Route: 042
  2. EPOETIN ALFA [Suspect]
     Active Substance: ERYTHROPOIETIN
     Dosage: 400 INTERNATIONAL UNIT/KILOGRAM (MAINTENANCE DOSING), 3 TIMES/WK
     Route: 058
  3. IRON [Concomitant]
     Active Substance: IRON
     Dosage: UNK (3.4, 4.8 MG/KG/D IN 3 WK, 6 WKS OF AGE)

REACTIONS (1)
  - Death [Fatal]
